FAERS Safety Report 11078785 (Version 1)
Quarter: 2015Q2

REPORT INFORMATION
  Report Type: Spontaneous
  Country: US (occurrence: US)
  Receive Date: 20150430
  Receipt Date: 20150430
  Transmission Date: 20150821
  Serious: Yes (Other)
  Sender: FDA-Public Use
  Company Number: US-PFIZER INC-2015141876

PATIENT
  Age: 34 Year
  Sex: Male
  Weight: 64 kg

DRUGS (1)
  1. DILANTIN [Suspect]
     Active Substance: PHENYTOIN
     Indication: EPILEPSY
     Dosage: 400 MG, 1X/DAY AT NIGHT

REACTIONS (7)
  - Contusion [Not Recovered/Not Resolved]
  - Anticonvulsant drug level below therapeutic [Recovered/Resolved]
  - Musculoskeletal stiffness [Not Recovered/Not Resolved]
  - Ear infection [Unknown]
  - Drug ineffective [Recovered/Resolved]
  - Rib fracture [Unknown]
  - Road traffic accident [Unknown]

NARRATIVE: CASE EVENT DATE: 201504
